FAERS Safety Report 18796022 (Version 13)
Quarter: 2021Q2

REPORT INFORMATION
  Report Type: Report from Study
  Country: FR (occurrence: FR)
  Receive Date: 20210127
  Receipt Date: 20210603
  Transmission Date: 20210717
  Serious: Yes (Hospitalization)
  Sender: FDA-Public Use
  Company Number: FR-EISAI MEDICAL RESEARCH-EC-2021-087072

PATIENT
  Age: 75 Year
  Sex: Male
  Weight: 70 kg

DRUGS (8)
  1. MK?1308 [Suspect]
     Active Substance: QUAVONLIMAB
     Indication: MALIGNANT MELANOMA
     Route: 041
     Dates: start: 20200911, end: 20201204
  2. AMLOR [Concomitant]
     Active Substance: AMLODIPINE BESYLATE
     Dates: start: 20201009
  3. PEMBROLIZUMAB. [Suspect]
     Active Substance: PEMBROLIZUMAB
     Route: 041
     Dates: start: 20210115, end: 20210115
  4. LENVATINIB [Suspect]
     Active Substance: LENVATINIB
     Indication: MALIGNANT MELANOMA
     Route: 048
     Dates: start: 20200911, end: 20210121
  5. LENVATINIB [Suspect]
     Active Substance: LENVATINIB
     Route: 048
     Dates: start: 20210406
  6. APROVEL [Concomitant]
     Active Substance: IRBESARTAN
     Dates: start: 201701
  7. MK?1308 [Suspect]
     Active Substance: QUAVONLIMAB
     Route: 041
     Dates: start: 20210115, end: 20210115
  8. PEMBROLIZUMAB. [Suspect]
     Active Substance: PEMBROLIZUMAB
     Indication: MALIGNANT MELANOMA
     Route: 041
     Dates: start: 20200911, end: 20201204

REACTIONS (1)
  - Anaemia [Recovering/Resolving]

NARRATIVE: CASE EVENT DATE: 20210115
